FAERS Safety Report 5325280-X (Version None)
Quarter: 2007Q2

REPORT INFORMATION
  Report Type: 
  Country: None (occurrence: None)
  Receive Date: 20070515
  Receipt Date: 20070507
  Transmission Date: 20071010
  Serious: Yes (Other)
  Sender: FDA-Public Use
  Company Number: US-ELI_LILLY_AND_COMPANY-US200705001616

PATIENT
  Sex: Male

DRUGS (2)
  1. FORTEO [Suspect]
  2. CARDIZEM [Concomitant]
     Indication: CARDIAC DISORDER

REACTIONS (7)
  - BLOOD GLUCOSE INCREASED [None]
  - COMPRESSION FRACTURE [None]
  - DIZZINESS [None]
  - FALL [None]
  - REFUSAL OF TREATMENT BY PATIENT [None]
  - RIB FRACTURE [None]
  - SPINAL COMPRESSION FRACTURE [None]
